FAERS Safety Report 4939662-9 (Version None)
Quarter: 2006Q1

REPORT INFORMATION
  Report Type: 
  Country: None (occurrence: None)
  Receive Date: 20060307
  Receipt Date: 20060224
  Transmission Date: 20060701
  Serious: Yes (Life-Threatening, Hospitalization)
  Sender: FDA-Public Use
  Company Number: 2006018132

PATIENT
  Age: 29 Year
  Sex: Female
  Weight: 125 kg

DRUGS (7)
  1. DEPO-PROVERA [Suspect]
     Indication: MENORRHAGIA
     Dosage: SEE IMAGE
     Dates: start: 20050801, end: 20050801
  2. DEPO-PROVERA [Suspect]
     Indication: MENORRHAGIA
     Dosage: SEE IMAGE
     Dates: start: 20060201, end: 20060201
  3. DOMPERIDONE (DOMPERIDONE) [Concomitant]
  4. CO-PROXAMOL (DEXTROPROPOXYPHENE HYDROCHLORIDE, PARACETAMOL) [Concomitant]
  5. CETIRIZINE (CETIRIZINE) [Concomitant]
  6. METRONIDAZOLE [Concomitant]
  7. ERYTHROMYCIN [Concomitant]

REACTIONS (3)
  - ANAPHYLACTIC SHOCK [None]
  - LOSS OF CONSCIOUSNESS [None]
  - RASH [None]
